FAERS Safety Report 7502763-5 (Version None)
Quarter: 2011Q2

REPORT INFORMATION
  Report Type: 
  Country: None (occurrence: None)
  Receive Date: 20110525
  Receipt Date: 20110519
  Transmission Date: 20111010
  Serious: Yes (Hospitalization)
  Sender: FDA-Public Use
  Company Number: FR-PFIZER INC-2011107750

PATIENT
  Age: 72 Year
  Sex: Female

DRUGS (14)
  1. NEXIUM [Concomitant]
     Dosage: 40 MG, 1X/DAY
  2. ISORYTHM [Concomitant]
     Dosage: 250 MG, UNK
  3. PROCORALAN [Concomitant]
     Dosage: 5 MG, UNK
  4. ASPIRIN [Concomitant]
     Dosage: 75 MG, UNK
  5. LEVEMIR [Concomitant]
     Dosage: UNK
  6. VICTOZA [Concomitant]
     Dosage: 1.2 MG, 1X/DAY
  7. ALLOPURINOL [Concomitant]
  8. LEVOTHYROXINE SODIUM [Concomitant]
     Dosage: 100 UG, 1X/DAY
  9. EXFORGE [Concomitant]
     Dosage: 10 MG/ 160 MG
  10. CYMBALTA [Concomitant]
     Dosage: 60 MG, 1X/DAY
  11. ATORVASTATIN [Suspect]
     Dosage: 20 MG, 1X/DAY
     Route: 048
     Dates: start: 20020401
  12. NOVORAPID [Concomitant]
     Dosage: 14 IU, 3X/DAY
  13. VENTOLIN [Concomitant]
  14. CLONAZEPAM [Concomitant]
     Dosage: 5 GTT, UNK

REACTIONS (4)
  - ARTHRALGIA [None]
  - PAIN [None]
  - PARAESTHESIA [None]
  - SCIATICA [None]
